FAERS Safety Report 10630734 (Version 1)
Quarter: 2014Q4

REPORT INFORMATION
  Report Type: Spontaneous
  Country: GB (occurrence: None)
  Receive Date: 20141203
  Receipt Date: 20141203
  Transmission Date: 20150529
  Serious: Yes (Death, Other)
  Sender: FDA-Public Use
  Company Number: 201411IM007766

PATIENT
  Age: 77 Year
  Sex: Male

DRUGS (1)
  1. ESBRIET [Suspect]
     Active Substance: PIRFENIDONE
     Indication: IDIOPATHIC PULMONARY FIBROSIS
     Route: 048
     Dates: start: 201410

REACTIONS (7)
  - Insomnia [None]
  - Cardio-respiratory arrest [None]
  - Seizure [None]
  - Muscular weakness [None]
  - Fatigue [None]
  - Panic attack [None]
  - Dyspnoea [None]

NARRATIVE: CASE EVENT DATE: 20141118
